FAERS Safety Report 7803206-4 (Version None)
Quarter: 2011Q4

REPORT INFORMATION
  Report Type: 
  Country: None (occurrence: None)
  Receive Date: 20111005
  Receipt Date: 20110921
  Transmission Date: 20120403
  Serious: Yes (Other)
  Sender: FDA-Public Use
  Company Number: 2011P1009016

PATIENT
  Age: 33 Year
  Sex: Female
  Weight: 61.2356 kg

DRUGS (4)
  1. NUDERM CLEAR (NO PREF. NAME) [Suspect]
     Indication: EPHELIDES
     Dosage: X1;TOP
     Route: 061
     Dates: start: 20110920, end: 20110920
  2. BIOTIN [Concomitant]
  3. FISH OIL [Concomitant]
  4. ONE-A-DAY MULTIVITAMIN [Concomitant]

REACTIONS (4)
  - NAUSEA [None]
  - FEELING HOT [None]
  - PRURITUS GENERALISED [None]
  - SWOLLEN TONGUE [None]
